FAERS Safety Report 8503846-3 (Version None)
Quarter: 2012Q3

REPORT INFORMATION
  Report Type: 
  Country: None (occurrence: None)
  Receive Date: 20120711
  Receipt Date: 20120628
  Transmission Date: 20120928
  Serious: Yes (Other)
  Sender: FDA-Public Use
  Company Number: JP-BRISTOL-MYERS SQUIBB COMPANY-16735573

PATIENT
  Age: 78 Year
  Sex: Male

DRUGS (7)
  1. ALENDRONATE SODIUM [Concomitant]
  2. TACROLIMUS [Concomitant]
     Indication: RHEUMATOID ARTHRITIS
  3. CLINORIL [Concomitant]
     Indication: RHEUMATOID ARTHRITIS
  4. CYTOTEC [Concomitant]
  5. RABEPRAZOLE SODIUM [Concomitant]
  6. ORENCIA [Suspect]
     Indication: RHEUMATOID ARTHRITIS
     Dosage: 16JUN,14JUL,11AUG,8SEP,6OCT,28NOV11-500MG DOSAGE WEIGHT:58.0KG
     Route: 041
     Dates: start: 20110601
  7. PREDNISOLONE [Concomitant]
     Indication: RHEUMATOID ARTHRITIS
     Route: 048

REACTIONS (1)
  - THROMBOSIS [None]
